FAERS Safety Report 4551966-0 (Version None)
Quarter: 2005Q1

REPORT INFORMATION
  Report Type: 
  Country: None (occurrence: None)
  Receive Date: 20050112
  Receipt Date: 20050106
  Transmission Date: 20050727
  Serious: Yes (Hospitalization, Other)
  Sender: FDA-Public Use
  Company Number: 2005-01-0065

PATIENT
  Sex: Female
  Weight: 113.3993 kg

DRUGS (2)
  1. RIBAVIRIN [Suspect]
     Indication: HEPATITIS C
  2. INTRON A [Suspect]
     Indication: HEPATITIS

REACTIONS (7)
  - BONE DISORDER [None]
  - DEVICE FAILURE [None]
  - HIP FRACTURE [None]
  - IMPAIRED HEALING [None]
  - PAIN IN EXTREMITY [None]
  - STRESS FRACTURE [None]
  - TENDON INJURY [None]
